FAERS Safety Report 7641886-7 (Version None)
Quarter: 2011Q3

REPORT INFORMATION
  Report Type: 
  Country: None (occurrence: None)
  Receive Date: 20110728
  Receipt Date: 20110722
  Transmission Date: 20111222
  Serious: Yes (Death)
  Sender: FDA-Public Use
  Company Number: FR-ROCHE-792452

PATIENT
  Sex: Male
  Weight: 55 kg

DRUGS (6)
  1. BEVACIZUMAB [Suspect]
     Route: 065
     Dates: start: 20110719
  2. ESCITALOPRAM OXALATE [Concomitant]
     Dates: start: 20110715
  3. TEMOZOLOMIDE [Suspect]
     Route: 042
     Dates: start: 20110719
  4. FERROUS SULFATE TAB [Concomitant]
     Dates: start: 20110707
  5. APROVEL [Concomitant]
     Dates: start: 20110716
  6. ZOLPIDEM [Concomitant]
     Dates: start: 20110709

REACTIONS (1)
  - TUMOUR HAEMORRHAGE [None]
